FAERS Safety Report 9524043 (Version 1)
Quarter: 2013Q3

REPORT INFORMATION
  Report Type: Spontaneous
  Country: GB (occurrence: None)
  Receive Date: 20130912
  Receipt Date: 20130912
  Transmission Date: 20140515
  Serious: Yes (Other)
  Sender: FDA-Public Use
  Company Number: FK201304159

PATIENT
  Age: 37 Year
  Sex: Male
  Weight: 91 kg

DRUGS (3)
  1. OXALIPATIN [Suspect]
     Indication: COLORECTAL CANCER METASTATIC
     Dosage: 260 MG, 1 IN 3 WK, INTRAVENOUS (NOT OTHERWISE SPECIFIED)
     Route: 042
     Dates: start: 20100524, end: 201207
  2. AVASTATIN [Suspect]
     Indication: COLORECTAL CANCER METASTATIC
     Route: 048
     Dates: start: 20100524, end: 201207
  3. XELODA [Suspect]
     Indication: COLORECTAL CANCER METASTATIC
     Dosage: 600 MG, 1 IN 3 WK, INTRAVENOUS (NOT OTHERWISE SPECIFIED)
     Route: 042
     Dates: start: 20100524, end: 201307

REACTIONS (4)
  - Hypersensitivity [None]
  - Pain [None]
  - Peripheral sensory neuropathy [None]
  - Thrombophlebitis [None]
